FAERS Safety Report 7267570-X (Version None)
Quarter: 2011Q1

REPORT INFORMATION
  Report Type: 
  Country: None (occurrence: None)
  Receive Date: 20110121
  Receipt Date: 20110107
  Transmission Date: 20110831
  Serious: Yes (Other)
  Sender: FDA-Public Use
  Company Number: RB-19042-2011

PATIENT
  Age: 80 Year
  Sex: Male

DRUGS (1)
  1. MUCINEX [Suspect]
     Indication: LUNG DISORDER
     Dosage: 1200 MG QD, PAITENT STARTED DOSING APPROXIMATELY A YEAR AGO, ORAL
     Route: 048

REACTIONS (1)
  - BLOOD PRESSURE INCREASED [None]
